FAERS Safety Report 13792935 (Version 1)
Quarter: 2017Q3

REPORT INFORMATION
  Report Type: Spontaneous
  Country: US (occurrence: US)
  Receive Date: 20170726
  Receipt Date: 20170726
  Transmission Date: 20171127
  Serious: Yes (Other)
  Sender: FDA-Public Use
  Company Number: US-LEXICON PHARMACEUTICALS, INC-17-1606-00562

PATIENT
  Sex: Female

DRUGS (14)
  1. MS CONTIN [Concomitant]
     Active Substance: MORPHINE SULFATE
  2. PREMARIN [Concomitant]
     Active Substance: ESTROGENS, CONJUGATED
  3. PERCOCET [Concomitant]
     Active Substance: ACETAMINOPHEN\OXYCODONE HYDROCHLORIDE
  4. MORPHINE SULFATE. [Concomitant]
     Active Substance: MORPHINE SULFATE
  5. PRILOSEC [Concomitant]
     Active Substance: OMEPRAZOLE MAGNESIUM
  6. ASPIR-LOW [Concomitant]
     Active Substance: ASPIRIN
  7. MOBIC [Concomitant]
     Active Substance: MELOXICAM
  8. METHYLPREDNISOLONE. [Concomitant]
     Active Substance: METHYLPREDNISOLONE
  9. SYNTHROID [Concomitant]
     Active Substance: LEVOTHYROXINE SODIUM
  10. TELOTRISTAT ETHYL [Suspect]
     Active Substance: TELOTRISTAT ETHYL
     Route: 048
  11. LOMOTIL [Concomitant]
     Active Substance: ATROPINE SULFATE\DIPHENOXYLATE HYDROCHLORIDE
  12. ZOFRAN [Concomitant]
     Active Substance: ONDANSETRON HYDROCHLORIDE
  13. AMBIEN [Concomitant]
     Active Substance: ZOLPIDEM TARTRATE
  14. COMPAZINE [Concomitant]
     Active Substance: PROCHLORPERAZINE MALEATE

REACTIONS (2)
  - Vomiting [Unknown]
  - Bone cancer metastatic [Unknown]

NARRATIVE: CASE EVENT DATE: 2017
